FAERS Safety Report 9899382 (Version 1)
Quarter: 2014Q1

REPORT INFORMATION
  Report Type: Report from Study
  Country: CA (occurrence: CA)
  Receive Date: 20140214
  Receipt Date: 20140214
  Transmission Date: 20141002
  Serious: Yes (Other)
  Sender: FDA-Public Use
  Company Number: CA-JNJFOC-20140206436

PATIENT
  Age: 48 Year
  Sex: Female
  Weight: 69.85 kg

DRUGS (2)
  1. REMICADE [Suspect]
     Indication: CROHN^S DISEASE
     Route: 042
     Dates: start: 201302
  2. ANTIBIOTICS [Concomitant]
     Route: 065

REACTIONS (6)
  - Lower respiratory tract infection viral [Unknown]
  - Arthritis [Unknown]
  - Pruritus [Unknown]
  - Nasopharyngitis [Unknown]
  - Malaise [Unknown]
  - Weight increased [Unknown]
